FAERS Safety Report 10062921 (Version 1)
Quarter: 2014Q1

REPORT INFORMATION
  Report Type: Spontaneous
  Country: US (occurrence: None)
  Receive Date: 20140328
  Receipt Date: 20140328
  Transmission Date: 20141002
  Serious: No
  Sender: FDA-Public Use
  Company Number: 1000055008

PATIENT
  Age: 67 Year
  Sex: Female

DRUGS (1)
  1. LINZESS [Suspect]
     Indication: CONSTIPATION
     Dosage: 145 MCG ( 145 MCG, 1 IN 1 D)
     Dates: start: 20140227

REACTIONS (2)
  - Nausea [None]
  - Abdominal pain [None]
